FAERS Safety Report 4385186-X (Version None)
Quarter: 2004Q2

REPORT INFORMATION
  Report Type: 
  Country: None (occurrence: None)
  Receive Date: 20040607
  Receipt Date: 20031124
  Transmission Date: 20050107
  Serious: Yes (Other)
  Sender: FDA-Public Use
  Company Number: 352641

PATIENT
  Sex: 0

DRUGS (3)
  1. ISOTRETINOIN [Suspect]
     Indication: ACNE
     Dosage: ORAL
     Route: 048
     Dates: start: 20020615, end: 20030912
  2. RANITIDINE [Concomitant]
  3. ORAL CONTRACEPTION (ORAL CONTRACEPTIVE NOS) [Concomitant]

REACTIONS (1)
  - ABORTION INDUCED [None]
